FAERS Safety Report 8683605 (Version 2)
Quarter: 2012Q4

REPORT INFORMATION
  Report Type: 
  Country: DE (occurrence: US)
  Receive Date: 20120726
  Receipt Date: 20120918
  Transmission Date: 20130627
  Serious: Yes (Hospitalization)
  Sender: FDA-Public Use
  Company Number: US-GENZYME-LEUK-1000293

PATIENT
  Age: 71 Year
  Sex: Male
  Weight: 92 kg

DRUGS (12)
  1. LEUKINE [Suspect]
     Indication: MALIGNANT MELANOMA
     Dosage: 250 mcg, qd (On days 1-14) induction therapy
     Route: 058
     Dates: start: 20110802, end: 20111005
  2. LEUKINE [Suspect]
     Dosage: 250 mcg, qd (On days 1-14) maintenance therapy
     Route: 058
     Dates: start: 20111025, end: 20111107
  3. IPILIMUMAB [Suspect]
     Indication: MALIGNANT MELANOMA
     Dosage: 10 mg/kg, once
     Route: 042
     Dates: start: 20110802
  4. IPILIMUMAB [Suspect]
     Dosage: 10 mg/kg, 90 minutes on day 1, q12 weeks
     Route: 042
  5. ACETYLSALICYLIC ACID [Concomitant]
     Indication: PRODUCT USED FOR UNKNOWN INDICATION
     Dosage: 100 mg, qd
     Route: 048
  6. COLACE [Concomitant]
     Indication: CONSTIPATION
     Dosage: 100 mg, bid PRN
     Route: 048
  7. LORAZEPAM [Concomitant]
     Indication: ANXIETY
     Dosage: 1 mg, qd, PRN
     Route: 048
  8. LORAZEPAM [Concomitant]
     Indication: INSOMNIA
  9. OMEPRAZOLE [Concomitant]
     Indication: PRODUCT USED FOR UNKNOWN INDICATION
     Dosage: 20 mg, bid
     Route: 048
  10. OXYCODONE [Concomitant]
     Indication: PAIN
     Dosage: 5 mg, q4hr, PRN
     Route: 048
  11. ZOLPIDEM TARTRATE [Concomitant]
     Indication: SLEEP DISORDER
     Dosage: 10 mg, q1hr, PRN
     Route: 048
  12. PREDNISONE [Concomitant]
     Indication: PRODUCT USED FOR UNKNOWN INDICATION
     Dosage: 5 mg, qd
     Route: 048

REACTIONS (7)
  - Dyspnoea [Recovered/Resolved]
  - Pruritus [Not Recovered/Not Resolved]
  - Fatigue [Recovered/Resolved]
  - Blood pressure increased [Not Recovered/Not Resolved]
  - Nausea [Recovered/Resolved with Sequelae]
  - Rash maculo-papular [Recovered/Resolved]
  - Decreased appetite [Recovered/Resolved]
